FAERS Safety Report 10055235 (Version 3)
Quarter: 2014Q2

REPORT INFORMATION
  Report Type: Spontaneous
  Country: IE (occurrence: IE)
  Receive Date: 20140403
  Receipt Date: 20140506
  Transmission Date: 20141212
  Serious: Yes (Disabling)
  Sender: FDA-Public Use
  Company Number: IE-PFIZER INC-2014070929

PATIENT
  Age: 77 Year
  Sex: Male

DRUGS (16)
  1. XALATAN [Suspect]
     Indication: GLAUCOMA
     Dosage: ONCE DAILY IN EYE AT NIGHT
     Route: 047
  2. ALLOPURINOL [Concomitant]
     Dosage: 100 MG, ONCE IN THE MORNING
  3. NATRILIX [Concomitant]
     Dosage: 1.5 MG, DAILY
  4. HALCION [Concomitant]
     Indication: SLEEP DISORDER
     Dosage: 0.25 MG, ONCE AT NIGHT
  5. CARDURA XL [Concomitant]
     Dosage: 8 MG, DAILY
  6. PROSCAR [Concomitant]
     Dosage: 5 MG, DAILY
  7. RENAGEL [Concomitant]
     Dosage: 800 MG, 3X/DAY
  8. LIPOSTAT [Concomitant]
     Dosage: 40 MG, DAILY
  9. NU-SEALS ASPIRIN [Concomitant]
     Dosage: 75 MG, DAILY
  10. ZIRTEK [Concomitant]
     Dosage: 10 MG ONCE DAILY AS REQUIRED
  11. ZOTON [Concomitant]
     Dosage: 30 MG, DAILY
  12. APROVEL [Concomitant]
     Dosage: 150 MG, DAILY
  13. ALPHAGAN [Concomitant]
     Dosage: ONE DROP IN BOTH EYES TWICE DAILY
     Route: 047
  14. PILOCARPINE [Concomitant]
     Dosage: ONE DROP INTO RIGHT EYE FOUR TIMES DAILY
     Route: 047
  15. MOLAXOLE [Concomitant]
     Dosage: 13.8 G, 2X/DAY
  16. AZARGA [Concomitant]
     Dosage: ONE DROP IN BOTH EYES TWICE DAILY (10MG,5MG/ML)
     Route: 047

REACTIONS (3)
  - Eye disorder [Not Recovered/Not Resolved]
  - Visual acuity reduced [Not Recovered/Not Resolved]
  - Product formulation issue [Not Recovered/Not Resolved]
